FAERS Safety Report 9071363 (Version 1)
Quarter: 2013Q1

REPORT INFORMATION
  Report Type: Report from Study
  Country: US (occurrence: US)
  Receive Date: 20130129
  Receipt Date: 20130129
  Transmission Date: 20140127
  Serious: No
  Sender: FDA-Public Use
  Company Number: US-ABBOTT-12P-163-0925960-00

PATIENT
  Age: 50 Year
  Sex: Female

DRUGS (5)
  1. HUMIRA 40 MG/0.8 ML PEN [Suspect]
     Indication: CROHN^S DISEASE
     Route: 050
     Dates: start: 201111
  2. LYRICA [Concomitant]
     Indication: FIBROMYALGIA
     Dosage: 25 MG DAILY
  3. ESTROGEN [Concomitant]
     Indication: HORMONE REPLACEMENT THERAPY
  4. LEXAPRO [Concomitant]
     Indication: DEPRESSION
     Dosage: 10 MG DAILY
  5. VITAMINS [Concomitant]
     Indication: PRODUCT USED FOR UNKNOWN INDICATION

REACTIONS (6)
  - Wrong technique in drug usage process [Not Recovered/Not Resolved]
  - Incorrect route of drug administration [Not Recovered/Not Resolved]
  - Incorrect dose administered [Not Recovered/Not Resolved]
  - Hypoaesthesia [Not Recovered/Not Resolved]
  - Tenderness [Not Recovered/Not Resolved]
  - Oedema [Not Recovered/Not Resolved]
